FAERS Safety Report 24205471 (Version 2)
Quarter: 2024Q3

REPORT INFORMATION
  Report Type: Spontaneous
  Country: CH (occurrence: CH)
  Receive Date: 20240813
  Receipt Date: 20240814
  Transmission Date: 20241016
  Serious: Yes (Life-Threatening, Hospitalization, Other)
  Sender: MERCK
  Company Number: None

PATIENT
  Age: 62 Year
  Sex: Female
  Weight: 51 kg

DRUGS (6)
  1. KEYTRUDA [Suspect]
     Active Substance: PEMBROLIZUMAB
     Indication: Anal squamous cell carcinoma
     Dosage: 200 MILLIGRAM
     Route: 040
     Dates: start: 20240529, end: 20240529
  2. KEYTRUDA [Suspect]
     Active Substance: PEMBROLIZUMAB
     Dosage: 200 MILLIGRAM
     Route: 040
     Dates: start: 20240628, end: 20240628
  3. ELIQUIS [Concomitant]
     Active Substance: APIXABAN
     Indication: Vena cava thrombosis
     Dosage: 5 MILLIGRAM
     Route: 048
     Dates: start: 202403, end: 20240629
  4. PRIVIGEN [Concomitant]
     Active Substance: HUMAN IMMUNOGLOBULIN G
     Indication: Immunodeficiency common variable
     Dosage: UNKNOWN DOSE. CONTINUING.
     Route: 040
  5. NPLATE [Concomitant]
     Active Substance: ROMIPLOSTIM
     Indication: Immunodeficiency common variable
     Dosage: CONTINUING.
     Route: 058
  6. TORSEMIDE [Concomitant]
     Active Substance: TORSEMIDE
     Dosage: 5 MILLIGRAM
     Route: 048
     Dates: end: 20240629

REACTIONS (2)
  - Colitis [Recovering/Resolving]
  - Septic shock [Recovered/Resolved]

NARRATIVE: CASE EVENT DATE: 20240629
